FAERS Safety Report 8513068-8 (Version None)
Quarter: 2012Q3

REPORT INFORMATION
  Report Type: 
  Country: None (occurrence: None)
  Receive Date: 20120716
  Receipt Date: 20120703
  Transmission Date: 20120928
  Serious: Yes (Hospitalization, Disabling, Other)
  Sender: FDA-Public Use
  Company Number: US-009507513-1111USA03006

PATIENT

DRUGS (7)
  1. TYLENOL PM [Concomitant]
     Dates: start: 20100105
  2. ALLEGRA [Concomitant]
     Dosage: 60 MG, BID
     Route: 048
  3. FOSAMAX [Suspect]
     Indication: OSTEOPOROSIS
     Dosage: 70 MG, QW
     Route: 048
     Dates: start: 19970218, end: 20100715
  4. FOSAMAX [Suspect]
     Dosage: 70 MG, UNK
     Route: 048
     Dates: start: 20090511, end: 20090827
  5. CLARINEX [Concomitant]
     Dates: start: 20040628
  6. ALAVERT [Concomitant]
     Dates: start: 20040628
  7. FOSAMAX [Suspect]
     Dosage: 70 MG, QW
     Route: 048
     Dates: start: 20100111, end: 20100705

REACTIONS (63)
  - URINARY TRACT INFECTION [None]
  - MICTURITION URGENCY [None]
  - INCREASED TENDENCY TO BRUISE [None]
  - OROPHARYNGEAL PAIN [None]
  - ANAEMIA [None]
  - TRICUSPID VALVE INCOMPETENCE [None]
  - MYALGIA [None]
  - FEMUR FRACTURE [None]
  - OSTEOPENIA [None]
  - LACERATION [None]
  - MELANOCYTIC NAEVUS [None]
  - HYPERKALAEMIA [None]
  - NOCTURIA [None]
  - HYPERCHOLESTEROLAEMIA [None]
  - PLATELET COUNT DECREASED [None]
  - HEADACHE [None]
  - PAIN IN EXTREMITY [None]
  - HYPERTENSION [None]
  - CHEST DISCOMFORT [None]
  - DIVERTICULUM INTESTINAL [None]
  - DYSPNOEA [None]
  - MUCOSAL ATROPHY [None]
  - COUGH [None]
  - BASAL CELL CARCINOMA [None]
  - PNEUMONIA [None]
  - ANKLE FRACTURE [None]
  - PARAESTHESIA [None]
  - HAEMORRHOIDS [None]
  - DYSURIA [None]
  - OSTEOARTHRITIS [None]
  - INJECTION SITE PAIN [None]
  - MUSCLE SPASMS [None]
  - RENAL FAILURE CHRONIC [None]
  - INFECTION [None]
  - POLYURIA [None]
  - BENIGN BREAST NEOPLASM [None]
  - PYURIA [None]
  - DECREASED APPETITE [None]
  - PLANTAR FASCIITIS [None]
  - MITRAL VALVE INCOMPETENCE [None]
  - MITRAL VALVE STENOSIS [None]
  - ABDOMINAL PAIN [None]
  - GOITRE [None]
  - PROCEDURAL HYPOTENSION [None]
  - PULMONARY HYPERTENSION [None]
  - CARDIAC FAILURE CONGESTIVE [None]
  - CORONARY ARTERY DISEASE [None]
  - VOMITING [None]
  - LUNG NEOPLASM [None]
  - GALLBLADDER DISORDER [None]
  - FALL [None]
  - WEIGHT DECREASED [None]
  - GASTROOESOPHAGEAL REFLUX DISEASE [None]
  - MUSCULOSKELETAL CHEST PAIN [None]
  - RENAL FAILURE ACUTE [None]
  - FOOT FRACTURE [None]
  - MUSCULAR WEAKNESS [None]
  - TUBULOINTERSTITIAL NEPHRITIS [None]
  - LIGAMENT SPRAIN [None]
  - TENDONITIS [None]
  - HAEMATOCHEZIA [None]
  - DYSPNOEA EXERTIONAL [None]
  - NAUSEA [None]
